FAERS Safety Report 9156584 (Version 3)
Quarter: 2013Q1

REPORT INFORMATION
  Report Type: Spontaneous
  Country: US (occurrence: None)
  Receive Date: 20130208
  Receipt Date: 20130328
  Transmission Date: 20140127
  Serious: Yes (Hospitalization, Other)
  Sender: FDA-Public Use
  Company Number: CIP11002938

PATIENT
  Age: 71 Year
  Sex: Female

DRUGS (8)
  1. ACTONEL [Suspect]
     Dosage: DOSAGE/ REGIMEN UNKNOWN
     Route: 048
  2. FOSAMAX (ALENDRONATE SODIUM) [Suspect]
     Dosage: ONCE WEEKLY
     Route: 048
     Dates: start: 20011211, end: 200712
  3. LEVOXYL (LEVOTHYROXINE SODIUM) [Concomitant]
  4. MEDROXYPROGESTERONE (MEDROXYPROGESTERONE) [Concomitant]
  5. DYAZIDE (HYDROCHLOROTHIAZIDE, TRIAMTERENE) [Concomitant]
  6. TOPROL (METOPROLOL SUCCINATE) [Concomitant]
  7. DETROL (TOLTERODINE L-TARTRATE) [Concomitant]
  8. CALTRATE WITH VITAMIN D (CALCIUM CARBONATE, COLECALCIFEROL) [Concomitant]

REACTIONS (6)
  - Pathological fracture [None]
  - Fracture displacement [None]
  - Fall [None]
  - Femur fracture [None]
  - Bone cancer metastatic [None]
  - Urinary tract infection [None]
